FAERS Safety Report 9354545 (Version 3)
Quarter: 2013Q4

REPORT INFORMATION
  Report Type: Spontaneous
  Country: CA (occurrence: CA)
  Receive Date: 20130618
  Receipt Date: 20131011
  Transmission Date: 20140711
  Serious: Yes (Death, Hospitalization)
  Sender: FDA-Public Use
  Company Number: CA-ALLERGAN-1308882US

PATIENT
  Age: 32 Year
  Sex: Male
  Weight: 36 kg

DRUGS (3)
  1. BOTOX [Suspect]
     Indication: SALIVARY HYPERSECRETION
     Dosage: 100 UNITS, SINGLE
     Dates: start: 20130415, end: 20130415
  2. BOTOX [Suspect]
     Dosage: 100 UNK, SINGLE
     Dates: start: 200505, end: 200505
  3. BOTOX [Suspect]
     Dosage: 100 UNK, SINGLE
     Dates: start: 200511, end: 200511

REACTIONS (3)
  - Pneumonia [Fatal]
  - Dysphagia [Fatal]
  - Off label use [Unknown]
